FAERS Safety Report 6111206-8 (Version None)
Quarter: 2009Q1

REPORT INFORMATION
  Report Type: 
  Country: None (occurrence: None)
  Receive Date: 20090309
  Receipt Date: 20090226
  Transmission Date: 20090719
  Serious: No
  Sender: FDA-Public Use
  Company Number: 2009-192381-NL

PATIENT
  Age: 84 Year
  Sex: Female

DRUGS (3)
  1. MIRTAZAPINE [Suspect]
     Dosage: 30 MG/5 DF ONCE
     Dates: start: 20090206, end: 20090207
  2. MIRTAZAPINE [Suspect]
     Dosage: 30 MG/5 DF ONCE
     Dates: start: 20090206
  3. CLOZAPINE [Suspect]
     Dosage: 0.5 DF
     Dates: start: 20090206, end: 20090207

REACTIONS (6)
  - ANAEMIA [None]
  - DRUG DISPENSING ERROR [None]
  - GASTRIC HAEMORRHAGE [None]
  - OVERDOSE [None]
  - SEDATION [None]
  - UNRESPONSIVE TO STIMULI [None]
